FAERS Safety Report 9714124 (Version 1)
Quarter: 2013Q4

REPORT INFORMATION
  Report Type: Spontaneous
  Country: US (occurrence: US)
  Receive Date: 20131126
  Receipt Date: 20131126
  Transmission Date: 20140711
  Serious: No
  Sender: FDA-Public Use
  Company Number: US-GILEAD-2008-0018957

PATIENT
  Sex: Male
  Weight: 83.46 kg

DRUGS (5)
  1. LETAIRIS [Suspect]
     Route: 048
     Dates: start: 20080625
  2. FLOLAN [Concomitant]
     Dosage: CONTINUOUS
     Route: 042
  3. COUMADIN [Concomitant]
     Route: 048
  4. TYLENOL [Concomitant]
     Route: 048
  5. FISH OIL [Concomitant]
     Route: 048

REACTIONS (1)
  - Skin exfoliation [Unknown]
